FAERS Safety Report 12901708 (Version 3)
Quarter: 2016Q4

REPORT INFORMATION
  Report Type: Report from Study
  Country: US (occurrence: US)
  Receive Date: 20161102
  Receipt Date: 20161111
  Transmission Date: 20170207
  Serious: No
  Sender: FDA-Public Use
  Company Number: PHEH2016US028360

PATIENT
  Age: 53 Year
  Sex: Male

DRUGS (1)
  1. GILENYA [Suspect]
     Active Substance: FINGOLIMOD HYDROCHLORIDE
     Indication: RELAPSING-REMITTING MULTIPLE SCLEROSIS
     Dosage: 0.5 MG, QD
     Route: 048
     Dates: start: 20161028

REACTIONS (5)
  - Nausea [Not Recovered/Not Resolved]
  - Dizziness [Recovered/Resolved]
  - Paraesthesia [Unknown]
  - Back pain [Not Recovered/Not Resolved]
  - Balance disorder [Unknown]

NARRATIVE: CASE EVENT DATE: 20161028
